FAERS Safety Report 5328587-5 (Version None)
Quarter: 2007Q2

REPORT INFORMATION
  Report Type: 
  Country: None (occurrence: None)
  Receive Date: 20070518
  Receipt Date: 20070509
  Transmission Date: 20071010
  Serious: Yes (Death, Life-Threatening, Hospitalization, Other)
  Sender: FDA-Public Use
  Company Number: GB-JNJFOC-20041006996

PATIENT
  Sex: Female
  Weight: 64 kg

DRUGS (12)
  1. REMICADE [Suspect]
     Indication: ANKYLOSING SPONDYLITIS
     Route: 042
  2. ERGOTAMINE [Concomitant]
  3. PLZOTIFEN [Concomitant]
  4. METHOTREXATE [Concomitant]
  5. FOLIC ACID [Concomitant]
  6. FERROUS GLUCONATE [Concomitant]
  7. PANTOPRAZOLE SODIUM [Concomitant]
  8. PIZOTIFEN [Concomitant]
  9. DIAZEPAM [Concomitant]
  10. CAFERGOT [Concomitant]
  11. TRAMADOL HCL [Concomitant]
  12. CITALOPRAM HYDROBROMIDE [Concomitant]

REACTIONS (1)
  - METASTATIC RENAL CELL CARCINOMA [None]
